FAERS Safety Report 25791045 (Version 1)
Quarter: 2025Q3

REPORT INFORMATION
  Report Type: Spontaneous
  Country: US (occurrence: None)
  Receive Date: 20250910
  Receipt Date: 20250910
  Transmission Date: 20251021
  Serious: Yes (Other)
  Sender: FDA-CTU
  Company Number: None

PATIENT
  Age: 84 Year
  Sex: Female

DRUGS (1)
  1. TADALAFIL [Suspect]
     Active Substance: TADALAFIL
     Dosage: FREQUENCY : DAILY;?
     Route: 048

REACTIONS (3)
  - Product distribution issue [None]
  - Product dose omission in error [None]
  - Dyspnoea [None]

NARRATIVE: CASE EVENT DATE: 20250805
